FAERS Safety Report 23873519 (Version 8)
Quarter: 2025Q1

REPORT INFORMATION
  Report Type: Report from Study
  Country: US (occurrence: US)
  Receive Date: 20240520
  Receipt Date: 20250205
  Transmission Date: 20250409
  Serious: Yes (Other)
  Sender: ABBVIE
  Company Number: US-ABBVIE-5765306

PATIENT
  Age: 76 Year
  Sex: Female

DRUGS (5)
  1. SKYRIZI [Suspect]
     Active Substance: RISANKIZUMAB-RZAA
     Indication: Psoriasis
     Route: 058
     Dates: start: 20240424
  2. SKYRIZI [Suspect]
     Active Substance: RISANKIZUMAB-RZAA
     Route: 058
     Dates: start: 20241125
  3. SKYRIZI [Suspect]
     Active Substance: RISANKIZUMAB-RZAA
     Route: 058
     Dates: start: 2024, end: 202407
  4. SKYRIZI [Suspect]
     Active Substance: RISANKIZUMAB-RZAA
     Route: 058
     Dates: start: 2024, end: 2024
  5. SKYRIZI [Suspect]
     Active Substance: RISANKIZUMAB-RZAA
     Route: 058
     Dates: start: 20240522

REACTIONS (12)
  - Breast cancer female [Not Recovered/Not Resolved]
  - Fall [Recovered/Resolved]
  - Gait inability [Recovered/Resolved]
  - Skin cancer [Unknown]
  - Device issue [Unknown]
  - Amnesia [Unknown]
  - Adverse drug reaction [Unknown]
  - Dysstasia [Unknown]
  - Hypotension [Recovered/Resolved]
  - Psoriasis [Unknown]
  - Injection site discharge [Not Recovered/Not Resolved]
  - Balance disorder [Unknown]

NARRATIVE: CASE EVENT DATE: 20240101
